FAERS Safety Report 17370537 (Version 1)
Quarter: 2020Q1

REPORT INFORMATION
  Report Type: Spontaneous
  Country: GB (occurrence: GB)
  Receive Date: 20200205
  Receipt Date: 20200205
  Transmission Date: 20200409
  Serious: Yes (Other)
  Sender: FDA-Public Use
  Company Number: GB-TEVA-2020-GB-1181051

PATIENT
  Age: 66 Year
  Sex: Male
  Weight: 96 kg

DRUGS (4)
  1. RAMIPRIL. [Concomitant]
     Active Substance: RAMIPRIL
  2. BISOPROLOL FUMARATE. [Concomitant]
     Active Substance: BISOPROLOL FUMARATE
  3. ROSUVASTATIN CALCIUM. [Suspect]
     Active Substance: ROSUVASTATIN CALCIUM
     Indication: BLOOD CHOLESTEROL INCREASED
     Dosage: 10 MILLIGRAM DAILY; NIGHT
     Route: 048
     Dates: start: 20171018, end: 20191230
  4. ACETYLSALICYLIC ACID [Concomitant]
     Active Substance: ASPIRIN

REACTIONS (4)
  - Arthralgia [Recovering/Resolving]
  - Myalgia [Recovering/Resolving]
  - Tinnitus [Recovered/Resolved with Sequelae]
  - Muscular weakness [Recovering/Resolving]

NARRATIVE: CASE EVENT DATE: 201805
